FAERS Safety Report 4533640-X (Version None)
Quarter: 2004Q4

REPORT INFORMATION
  Report Type: 
  Country: None (occurrence: None)
  Receive Date: 20041221
  Receipt Date: 20041210
  Transmission Date: 20050328
  Serious: Yes (Hospitalization, Other)
  Sender: FDA-Public Use
  Company Number: US-GLAXOSMITHKLINE-A0536905A

PATIENT
  Age: 86 Year
  Sex: Female
  Weight: 59.1 kg

DRUGS (4)
  1. ECOTRIN ADULT STRENGTH LOW 81MG [Suspect]
     Indication: CEREBROVASCULAR ACCIDENT PROPHYLAXIS
     Route: 048
     Dates: start: 19990101, end: 20040601
  2. ECOTRIN REGULAR STRENGTH TABLETS [Concomitant]
     Indication: CEREBROVASCULAR ACCIDENT PROPHYLAXIS
     Route: 048
     Dates: start: 20040601
  3. NORVASC [Concomitant]
     Indication: HYPERTENSION
     Route: 048
  4. PRAVACHOL [Concomitant]
     Indication: BLOOD CHOLESTEROL INCREASED
     Route: 048

REACTIONS (8)
  - ASTHENIA [None]
  - CONTUSION [None]
  - DIVERTICULITIS [None]
  - INCREASED TENDENCY TO BRUISE [None]
  - LARGE INTESTINE PERFORATION [None]
  - PYREXIA [None]
  - RED BLOOD CELL COUNT DECREASED [None]
  - RENAL FAILURE [None]
